FAERS Safety Report 7927314-2 (Version None)
Quarter: 2011Q4

REPORT INFORMATION
  Report Type: 
  Country: None (occurrence: None)
  Receive Date: 20111118
  Receipt Date: 20111109
  Transmission Date: 20120403
  Serious: Yes (Other)
  Sender: FDA-Public Use
  Company Number: PHHY2011DE14350

PATIENT
  Sex: Female
  Weight: 75 kg

DRUGS (12)
  1. ACETAMINOPHEN [Concomitant]
  2. ALLOPURINOL [Concomitant]
     Indication: HYPERURICAEMIA
     Dosage: 1X1
     Route: 048
  3. AMLODIPINE [Concomitant]
     Indication: HYPERTENSION
     Dosage: 1X1
     Route: 048
  4. FRAXIPARIN [Concomitant]
     Dosage: UNK UKN, QD
     Dates: start: 20060101, end: 20060101
  5. ZOMETA [Suspect]
     Indication: BREAST CANCER
     Dosage: 4 MG, 1-2 PER YEAR
     Route: 042
     Dates: start: 20051001
  6. ZOMETA [Interacting]
     Dosage: 4 MG, 1-2 PER YEAR
     Route: 042
     Dates: start: 20100901, end: 20110401
  7. AROMASIN [Interacting]
     Dosage: 1/2 YEARLY
     Route: 048
     Dates: start: 20051001
  8. HERBAL PREPARATION [Concomitant]
     Dosage: 2X1
     Route: 048
  9. AROMASIN [Interacting]
     Dosage: 1/2 YEARLY
     Route: 048
     Dates: end: 20110301
  10. TRIAMTERENE AND HYDROCHLOROTHIAZIDE [Concomitant]
     Indication: HYPERTENSION
     Dosage: 1X1
     Route: 048
  11. THYM-UVOCAL [Concomitant]
     Indication: AUTOIMMUNE THYROIDITIS
     Dates: start: 20100101, end: 20100301
  12. LEVOTHYROXINE SODIUM [Concomitant]
     Indication: HYPOTHYROIDISM
     Dosage: 1 DF, QD
     Route: 048

REACTIONS (5)
  - HEPATIC ENZYME INCREASED [None]
  - MEMORY IMPAIRMENT [None]
  - APHASIA [None]
  - EOSINOPHIL COUNT INCREASED [None]
  - HEPATITIS TOXIC [None]
